FAERS Safety Report 17974914 (Version 2)
Quarter: 2020Q3

REPORT INFORMATION
  Report Type: Spontaneous
  Country: US (occurrence: US)
  Receive Date: 20200702
  Receipt Date: 20200703
  Transmission Date: 20201103
  Serious: Yes (Other)
  Sender: FDA-Public Use
  Company Number: US-PFIZER INC-2020251713

PATIENT
  Age: 65 Year
  Sex: Male

DRUGS (8)
  1. VALPROIC ACID. [Interacting]
     Active Substance: VALPROIC ACID
     Dosage: 1000 MG, 2X/DAY
  2. WARFARIN [Concomitant]
     Active Substance: WARFARIN
     Dosage: UNK
  3. LAMOTRIGINE. [Interacting]
     Active Substance: LAMOTRIGINE
     Dosage: 150 MG, 2X/DAY
  4. LAMOTRIGINE. [Interacting]
     Active Substance: LAMOTRIGINE
     Dosage: 150 MG, 2X/DAY
  5. LAMOTRIGINE. [Interacting]
     Active Substance: LAMOTRIGINE
     Dosage: 75 MG, 2X/DAY
  6. LAMOTRIGINE. [Interacting]
     Active Substance: LAMOTRIGINE
     Dosage: 200 MG, 2X/DAY (DOSE WAS INCREASED)
  7. SERTRALINE HCL [Suspect]
     Active Substance: SERTRALINE HYDROCHLORIDE
     Indication: DEPRESSION
     Dosage: 25 MG, DAILY
  8. VALPROIC ACID. [Interacting]
     Active Substance: VALPROIC ACID
     Dosage: 1500 MG, 2X/DAY

REACTIONS (2)
  - Drug interaction [Recovered/Resolved]
  - Delirium [Recovered/Resolved]
